FAERS Safety Report 4761286-7 (Version None)
Quarter: 2005Q3

REPORT INFORMATION
  Report Type: 
  Country: None (occurrence: None)
  Receive Date: 20050906
  Receipt Date: 20050823
  Transmission Date: 20060218
  Serious: Yes (Hospitalization)
  Sender: FDA-Public Use
  Company Number: US-JNJFOC-20050802624

PATIENT
  Sex: Female
  Weight: 92.3 kg

DRUGS (20)
  1. BLINDED; PENTOSAN POLYSULFATE SODIUM [Suspect]
     Indication: CYSTITIS INTERSTITIAL
     Dosage: SUBJECT COMPLETED STUDY TREATMENT ON 27-JUL-2005
     Route: 048
  2. SYNTHROID [Concomitant]
     Route: 048
  3. SYNTHROID [Concomitant]
     Route: 048
  4. SYNTHROID [Concomitant]
     Route: 048
  5. SYNTHROID [Concomitant]
     Indication: HYPOTHYROIDISM
     Route: 048
  6. LISINOPRIL [Concomitant]
     Indication: HYPERTENSION
     Route: 048
  7. NEXIUM [Concomitant]
     Indication: GASTROOESOPHAGEAL REFLUX DISEASE
     Route: 048
  8. FLONASE [Concomitant]
     Route: 045
  9. ASPIRIN [Concomitant]
     Indication: PROPHYLAXIS
     Route: 048
  10. MULTIVITAMIN [Concomitant]
     Route: 048
  11. MULTIVITAMIN [Concomitant]
     Route: 048
  12. MULTIVITAMIN [Concomitant]
     Route: 048
  13. MULTIVITAMIN [Concomitant]
     Route: 048
  14. MULTIVITAMIN [Concomitant]
     Route: 048
  15. MULTIVITAMIN [Concomitant]
     Route: 048
  16. MULTIVITAMIN [Concomitant]
     Route: 048
  17. MULTIVITAMIN [Concomitant]
     Indication: VITAMIN SUPPLEMENTATION
     Route: 048
  18. FUROSEMIDE [Concomitant]
     Route: 048
  19. CALCIUM GLUCONATE [Concomitant]
     Indication: VITAMIN SUPPLEMENTATION
     Route: 048
  20. VYTORIN [Concomitant]
     Route: 048

REACTIONS (2)
  - CHEST PAIN [None]
  - CHOLELITHIASIS [None]
